FAERS Safety Report 9924247 (Version 3)
Quarter: 2014Q1

REPORT INFORMATION
  Report Type: Spontaneous
  Country: CA (occurrence: CA)
  Receive Date: 20140226
  Receipt Date: 20140321
  Transmission Date: 20141002
  Serious: Yes (Other)
  Sender: FDA-Public Use
  Company Number: CA-AMGEN-CANSP2014013223

PATIENT
  Age: 70 Year
  Sex: Male

DRUGS (14)
  1. ENBREL [Suspect]
     Indication: RHEUMATOID ARTHRITIS
     Dosage: 50 MG, UNK
     Route: 065
     Dates: start: 20130213
  2. COD-LIVER OIL [Concomitant]
     Dosage: UNK
  3. VIT B12 [Concomitant]
     Dosage: UNK
  4. DOCUSATE SODIUM [Concomitant]
     Dosage: 100 MG, UNK
  5. SENOKOT                            /00142201/ [Concomitant]
     Dosage: UNK
  6. SANDOZ-TAMSULOSIN [Concomitant]
     Dosage: UNK
  7. FUROSEMIDE [Concomitant]
     Dosage: UNK
  8. POTASSIUM CHLORIDE [Concomitant]
     Dosage: UNK
  9. ACTONEL [Concomitant]
     Dosage: UNK
  10. CARBOPLATIN [Concomitant]
     Dosage: UNK
  11. FOLIC ACID [Concomitant]
     Dosage: UNK
  12. PANTOPRAZOL [Concomitant]
     Dosage: UNK
  13. VIT D [Concomitant]
     Dosage: UNK
  14. MTX                                /00113801/ [Concomitant]
     Dosage: UNK

REACTIONS (3)
  - Gastric ulcer [Recovered/Resolved]
  - Asthenia [Recovered/Resolved]
  - Condition aggravated [Recovered/Resolved]
